FAERS Safety Report 6505241-5 (Version None)
Quarter: 2009Q4

REPORT INFORMATION
  Report Type: 
  Country: None (occurrence: None)
  Receive Date: 20091218
  Receipt Date: 20091214
  Transmission Date: 20100525
  Serious: Yes (Life-Threatening, Hospitalization, Other)
  Sender: FDA-Public Use
  Company Number: JP-JNJFOC-20091203146

PATIENT
  Sex: Male
  Weight: 65 kg

DRUGS (10)
  1. RISPERDAL CONSTA [Suspect]
     Indication: SCHIZOPHRENIA
     Route: 030
  2. RISPERDAL CONSTA [Suspect]
     Route: 030
  3. RISPERDAL CONSTA [Suspect]
     Route: 030
  4. ABILIFY [Suspect]
     Indication: SCHIZOPHRENIA
     Route: 048
  5. ABILIFY [Suspect]
     Route: 048
  6. FLUNITRAZEPAM [Suspect]
     Indication: INSOMNIA
     Route: 048
  7. SELENICA-R [Suspect]
     Indication: SCHIZOPHRENIA
     Route: 048
  8. MYSLEE [Concomitant]
     Indication: INSOMNIA
     Route: 048
  9. PURSENNID [Concomitant]
     Route: 048
  10. SENNOSIDE [Concomitant]
     Indication: CONSTIPATION
     Route: 048

REACTIONS (4)
  - DEHYDRATION [None]
  - PNEUMONIA ASPIRATION [None]
  - PSYCHIATRIC SYMPTOM [None]
  - RHABDOMYOLYSIS [None]
